FAERS Safety Report 7406249-8 (Version None)
Quarter: 2011Q2

REPORT INFORMATION
  Report Type: 
  Country: None (occurrence: None)
  Receive Date: 20110411
  Receipt Date: 20110331
  Transmission Date: 20111010
  Serious: Yes (Other)
  Sender: FDA-Public Use
  Company Number: US-JNJFOC-2010029587

PATIENT
  Sex: Female
  Weight: 61.2 kg

DRUGS (2)
  1. VITAMINS [Concomitant]
     Indication: VITAMIN SUPPLEMENTATION
     Dosage: DAILY DOSE TEXT: UNKNOWN
     Route: 065
  2. MULTI-SYMPTOM ROLAIDS PLUS ANTI-GAS SOFTCHEWS FRUIT [Suspect]
     Indication: DYSPEPSIA
     Dosage: DAILY DOSE TEXT: ONE CHEWABLE TWO OR THREE TIMES
     Route: 048

REACTIONS (10)
  - JAW DISORDER [None]
  - EAR PAIN [None]
  - DYSKINESIA [None]
  - PRODUCT QUALITY ISSUE [None]
  - CONDITION AGGRAVATED [None]
  - PAIN IN JAW [None]
  - NECK PAIN [None]
  - INFLAMMATION [None]
  - HEADACHE [None]
  - INSOMNIA [None]
